FAERS Safety Report 6916309-3 (Version None)
Quarter: 2010Q3

REPORT INFORMATION
  Report Type: 
  Country: None (occurrence: None)
  Receive Date: 20100810
  Receipt Date: 20100730
  Transmission Date: 20110219
  Serious: Yes (Other)
  Sender: FDA-Public Use
  Company Number: US-PFIZER INC-2010096123

PATIENT

DRUGS (1)
  1. ZMAX [Suspect]
     Dosage: UNK
     Route: 048

REACTIONS (2)
  - CEREBROVASCULAR ACCIDENT [None]
  - ELECTROCARDIOGRAM QT PROLONGED [None]
